FAERS Safety Report 8796015 (Version 3)
Quarter: 2012Q4

REPORT INFORMATION
  Report Type: 
  Country: CA (occurrence: CA)
  Receive Date: 20120919
  Receipt Date: 20121031
  Transmission Date: 20130627
  Serious: Yes (Death, Other)
  Sender: FDA-Public Use
  Company Number: US-AMGEN-CANSP2012059173

PATIENT
  Age: 76 Year
  Sex: Male

DRUGS (2)
  1. XGEVA [Suspect]
     Indication: PRODUCT USED FOR UNKNOWN INDICATION
     Dosage: UNK
     Route: 058
     Dates: start: 20120206, end: 20120917
  2. ZOMETA [Concomitant]
     Dosage: UNK

REACTIONS (1)
  - Neoplasm malignant [Fatal]
